FAERS Safety Report 9804168 (Version 1)
Quarter: 2014Q1

REPORT INFORMATION
  Report Type: Spontaneous
  Country: US (occurrence: None)
  Receive Date: 20140106
  Receipt Date: 20140106
  Transmission Date: 20141002
  Serious: Yes (Other)
  Sender: FDA-Public Use
  Company Number: ADR-2013-02370

PATIENT
  Age: 52 Year
  Sex: Male

DRUGS (2)
  1. LIORESAL [Suspect]
     Indication: MUSCLE SPASTICITY
  2. MORPHINE [Suspect]
     Indication: PAIN

REACTIONS (8)
  - Fall [None]
  - Pain in extremity [None]
  - Burning sensation [None]
  - Headache [None]
  - Formication [None]
  - Withdrawal syndrome [None]
  - Head injury [None]
  - Pain in extremity [None]
